APPROVED DRUG PRODUCT: MEMANTINE HYDROCHLORIDE
Active Ingredient: MEMANTINE HYDROCHLORIDE
Strength: 10MG
Dosage Form/Route: TABLET;ORAL
Application: A091585 | Product #002
Applicant: JUBILANT GENERICS LTD
Approved: Oct 13, 2015 | RLD: No | RS: No | Type: DISCN